FAERS Safety Report 7421798-4 (Version None)
Quarter: 2011Q2

REPORT INFORMATION
  Report Type: 
  Country: None (occurrence: None)
  Receive Date: 20110418
  Receipt Date: 20110407
  Transmission Date: 20111010
  Serious: Yes (Hospitalization)
  Sender: FDA-Public Use
  Company Number: MX-SANOFI-AVENTIS-2011SA021463

PATIENT
  Age: 77 Year
  Sex: Female
  Weight: 53 kg

DRUGS (3)
  1. AMLODIPINE [Concomitant]
     Dosage: STRENGTH: 5 MG, DOSE: 1 TABLET PER 24 HOURS
     Route: 048
     Dates: start: 19910101
  2. LOSARTAN POTASSIUM [Concomitant]
     Dosage: STRENGTH: 50 MG, DOSE: 1 TABLETP PER 24 HOURS
     Route: 048
     Dates: start: 19910101
  3. GLIMEPIRIDE [Suspect]
     Indication: TYPE 2 DIABETES MELLITUS
     Dosage: DOSE: HALF TABLET PER 12 HOURS
     Route: 048
     Dates: start: 20040101, end: 20100701

REACTIONS (1)
  - PNEUMONIA [None]
